FAERS Safety Report 22347656 (Version 1)
Quarter: 2023Q2

REPORT INFORMATION
  Report Type: Spontaneous
  Country: FR (occurrence: FR)
  Receive Date: 20230522
  Receipt Date: 20230522
  Transmission Date: 20230721
  Serious: Yes (Hospitalization)
  Sender: FDA-Public Use
  Company Number: None

PATIENT
  Age: 60 Year
  Sex: Male
  Weight: 129 kg

DRUGS (1)
  1. TECFIDERA [Suspect]
     Active Substance: DIMETHYL FUMARATE
     Indication: Multiple sclerosis
     Route: 050
     Dates: start: 201408, end: 20230421

REACTIONS (1)
  - Anti-neutrophil cytoplasmic antibody positive vasculitis [Not Recovered/Not Resolved]

NARRATIVE: CASE EVENT DATE: 20230426
